FAERS Safety Report 16262359 (Version 1)
Quarter: 2019Q2

REPORT INFORMATION
  Report Type: Spontaneous
  Country: PL (occurrence: PL)
  Receive Date: 20190501
  Receipt Date: 20190501
  Transmission Date: 20190711
  Serious: Yes (Other)
  Sender: FDA-Public Use
  Company Number: PHHY2019PL096798

PATIENT
  Age: 67 Year
  Sex: Female

DRUGS (3)
  1. KISQALI [Suspect]
     Active Substance: RIBOCICLIB
     Indication: BREAST CANCER
     Dosage: 600 MG, QD FOR 21 DAYS, 7 DAYS BREAK)
     Route: 065
     Dates: start: 20181122
  2. LETROZOLE. [Concomitant]
     Active Substance: LETROZOLE
     Indication: BREAST CANCER
     Dosage: 2.5 MG, QD
     Route: 065
     Dates: start: 20181122
  3. ZOLEDRONATE [Suspect]
     Active Substance: ZOLEDRONIC ACID
     Indication: BREAST CANCER
     Dosage: 4 MG, UNK
     Route: 065
     Dates: start: 20181122

REACTIONS (3)
  - Pruritus [Unknown]
  - Hepatotoxicity [Recovered/Resolved]
  - Haematotoxicity [Recovering/Resolving]
